FAERS Safety Report 4725901-6 (Version None)
Quarter: 2005Q3

REPORT INFORMATION
  Report Type: 
  Country: None (occurrence: None)
  Receive Date: 20050726
  Receipt Date: 20050726
  Transmission Date: 20060218
  Serious: Yes (Other)
  Sender: FDA-Public Use
  Company Number: None

PATIENT
  Age: 72 Year
  Sex: Female
  Weight: 62.5964 kg

DRUGS (1)
  1. CREST PREMIUM WHITE STRIPS [Suspect]
     Indication: TOOTH DISCOLOURATION
     Dosage: 4 APPLICATIO
     Dates: start: 20050610, end: 20050614

REACTIONS (3)
  - CAUSTIC INJURY [None]
  - ORAL INTAKE REDUCED [None]
  - ORAL PAIN [None]
